FAERS Safety Report 22593149 (Version 1)
Quarter: 2023Q2

REPORT INFORMATION
  Report Type: Other
  Country: None (occurrence: US)
  Receive Date: 20230613
  Receipt Date: 20230613
  Transmission Date: 20230721
  Serious: Yes (Hospitalization)
  Sender: FDA-Public Use
  Company Number: US-P+L Developments of Newyork Corporation-2142632

PATIENT
  Age: 77 Year
  Sex: Female

DRUGS (1)
  1. OMEPRAZOLE [Suspect]
     Active Substance: OMEPRAZOLE
     Indication: Lymphocytic oesophagitis
     Route: 065

REACTIONS (2)
  - Drug ineffective [Unknown]
  - Dizziness [Unknown]
